FAERS Safety Report 26167855 (Version 1)
Quarter: 2025Q4

REPORT INFORMATION
  Report Type: Report from Study
  Country: EU (occurrence: EU)
  Receive Date: 20251217
  Receipt Date: 20251217
  Transmission Date: 20260118
  Serious: Yes (Other)
  Sender: ABBVIE
  Company Number: EU-ABBVIE-6398487

PATIENT
  Age: 58 Year
  Sex: Female

DRUGS (4)
  1. FOSCARBIDOPA\FOSLEVODOPA [Suspect]
     Active Substance: FOSCARBIDOPA\FOSLEVODOPA
     Indication: Parkinson^s disease
     Dosage: DOSAGE: 1 VIAL PRODUODOPA BASE RATE?LOW 0.22ML BASE 0.25ML HIGH 0.27ML
     Route: 058
     Dates: start: 20250730, end: 20250819
  2. FOSCARBIDOPA\FOSLEVODOPA [Suspect]
     Active Substance: FOSCARBIDOPA\FOSLEVODOPA
     Dosage: LOW INCREASED FROM 0.24ML TO 0.27ML,?BASE INCREASED FROM 0.27ML TO 0.30ML,?HIGH INCREASED FROM 0....
     Route: 058
     Dates: start: 20250819, end: 20250918
  3. FOSCARBIDOPA\FOSLEVODOPA [Suspect]
     Active Substance: FOSCARBIDOPA\FOSLEVODOPA
     Dosage: LOW INCREASED FROM  0.27ML TO 0.30ML?BASE INCREASED FROM 0.30ML TO 0.33ML?HIGH INCREASED FROM 0.3...
     Route: 058
     Dates: start: 20250918, end: 20251208
  4. FOSCARBIDOPA\FOSLEVODOPA [Suspect]
     Active Substance: FOSCARBIDOPA\FOSLEVODOPA
     Dosage: HIGH RATE INCREASED FROM 0.36ML TO 0.37ML ?BASE RATE INCREASED FROM 0.33ML TO 0.35ML ?LOW INCREAS...
     Route: 058
     Dates: start: 20251208

REACTIONS (17)
  - Loss of consciousness [Unknown]
  - Fall [Unknown]
  - Depressed mood [Not Recovered/Not Resolved]
  - Infusion site nodule [Recovered/Resolved]
  - Musculoskeletal stiffness [Unknown]
  - On and off phenomenon [Not Recovered/Not Resolved]
  - Bradykinesia [Unknown]
  - Anxiety [Unknown]
  - Depression [Unknown]
  - Infusion site reaction [Recovered/Resolved]
  - Infusion site infection [Recovering/Resolving]
  - Dystonia [Not Recovered/Not Resolved]
  - Dyskinesia [Recovered/Resolved]
  - Joint stiffness [Unknown]
  - Memory impairment [Unknown]
  - Dizziness [Unknown]
  - Infusion site bruising [Not Recovered/Not Resolved]

NARRATIVE: CASE EVENT DATE: 20250101
